FAERS Safety Report 9314564 (Version 1)
Quarter: 2013Q2

REPORT INFORMATION
  Report Type: Spontaneous
  Country: JP (occurrence: JP)
  Receive Date: 20130529
  Receipt Date: 20130529
  Transmission Date: 20140414
  Serious: Yes (Other)
  Sender: FDA-Public Use
  Company Number: JP-PFIZER INC-2013162230

PATIENT
  Age: 81 Year
  Sex: Male

DRUGS (4)
  1. NORVASC [Suspect]
  2. AMLODIPINE BESILATE [Suspect]
  3. WARFARIN [Suspect]
     Indication: ATRIAL FIBRILLATION
     Dosage: UNK
     Dates: end: 201305
  4. BLOPRESS [Concomitant]

REACTIONS (2)
  - Haematochezia [Recovered/Resolved]
  - Arrhythmia [Unknown]
